FAERS Safety Report 8554964-5 (Version None)
Quarter: 2012Q3

REPORT INFORMATION
  Report Type: 
  Country: None (occurrence: None)
  Receive Date: 20120726
  Receipt Date: 20120726
  Transmission Date: 20120928
  Serious: Yes (Other)
  Sender: FDA-Public Use
  Company Number: None

PATIENT
  Sex: Male
  Weight: 106.5953 kg

DRUGS (1)
  1. CLONAZEPAM [Suspect]
     Indication: ANXIETY DISORDER

REACTIONS (2)
  - PERFORMANCE STATUS DECREASED [None]
  - ANXIETY [None]
